FAERS Safety Report 6046547-6 (Version None)
Quarter: 2009Q1

REPORT INFORMATION
  Report Type: 
  Country: None (occurrence: None)
  Receive Date: 20090122
  Receipt Date: 20090112
  Transmission Date: 20090719
  Serious: Yes (Other)
  Sender: FDA-Public Use
  Company Number: PHHY2009CA01269

PATIENT
  Sex: Female

DRUGS (2)
  1. DIOVAN HCT [Suspect]
     Dosage: 1 DF(80/12.5 MG) DAILY
     Route: 048
  2. DIOVAN [Suspect]
     Dosage: 1 DF(160 MG) DAILY
     Route: 048

REACTIONS (2)
  - GASTROINTESTINAL CARCINOMA [None]
  - INTESTINAL POLYP [None]
